FAERS Safety Report 13775766 (Version 1)
Quarter: 2017Q3

REPORT INFORMATION
  Report Type: Spontaneous
  Country: US (occurrence: US)
  Receive Date: 20170721
  Receipt Date: 20170721
  Transmission Date: 20171127
  Serious: Yes (Life-Threatening, Hospitalization, Other)
  Sender: FDA-Public Use
  Company Number: US-MYLANLABS-2017M1043184

PATIENT

DRUGS (1)
  1. METHADONE [Suspect]
     Active Substance: METHADONE HYDROCHLORIDE
     Indication: ACCIDENTAL EXPOSURE TO PRODUCT
     Route: 065

REACTIONS (9)
  - Hypoglycaemia [Recovered/Resolved]
  - Mental disorder [Recovering/Resolving]
  - Miosis [Recovering/Resolving]
  - Accidental exposure to product [Recovered/Resolved]
  - Unresponsive to stimuli [Recovered/Resolved]
  - Cyanosis [Recovered/Resolved]
  - Muscle contractions involuntary [Recovered/Resolved]
  - Respiratory failure [Recovered/Resolved]
  - Muscle tightness [Recovered/Resolved]
